FAERS Safety Report 5721486-6 (Version None)
Quarter: 2008Q2

REPORT INFORMATION
  Report Type: 
  Country: None (occurrence: None)
  Receive Date: 20080428
  Receipt Date: 20080428
  Transmission Date: 20081010
  Serious: Yes (Other)
  Sender: FDA-Public Use
  Company Number: None

PATIENT
  Age: 52 Year
  Sex: Male
  Weight: 95.2554 kg

DRUGS (1)
  1. VYTORIN [Suspect]
     Dosage: 1 TABLET DAILY PO
     Route: 048
     Dates: start: 20060401, end: 20071101

REACTIONS (8)
  - DRY SKIN [None]
  - IMPAIRED HEALING [None]
  - MUSCLE INJURY [None]
  - MUSCLE SPASMS [None]
  - MUSCLE STRAIN [None]
  - MUSCULAR WEAKNESS [None]
  - PAIN [None]
  - RASH [None]
